FAERS Safety Report 20533855 (Version 1)
Quarter: 2022Q1

REPORT INFORMATION
  Report Type: Spontaneous
  Country: GB (occurrence: GB)
  Receive Date: 20220301
  Receipt Date: 20220301
  Transmission Date: 20220423
  Serious: Yes (Other)
  Sender: FDA-Public Use
  Company Number: GB-CELGENE-GBR-20220206386

PATIENT
  Age: 51 Year
  Sex: Male

DRUGS (1)
  1. THALIDOMIDE [Suspect]
     Active Substance: THALIDOMIDE
     Indication: Behcet^s syndrome
     Route: 065
     Dates: start: 2000

REACTIONS (5)
  - Behcet^s syndrome [Unknown]
  - Near death experience [Unknown]
  - Vasculitis [Unknown]
  - Emotional distress [Unknown]
  - Staphylococcal infection [Unknown]
